FAERS Safety Report 4412843-9 (Version None)
Quarter: 2004Q3

REPORT INFORMATION
  Report Type: 
  Country: None (occurrence: None)
  Receive Date: 20040730
  Receipt Date: 20040730
  Transmission Date: 20050211
  Serious: Yes (Death)
  Sender: FDA-Public Use
  Company Number: None

PATIENT
  Age: 35 Year
  Sex: Male
  Weight: 77.1115 kg

DRUGS (1)
  1. DURAGESIC [Suspect]
     Indication: BACK PAIN
     Dosage: 7.5 MG 72 HOURS TRANSDERMAL
     Route: 062

REACTIONS (4)
  - DEEP VEIN THROMBOSIS [None]
  - MEDICATION ERROR [None]
  - PHARMACEUTICAL PRODUCT COMPLAINT [None]
  - PULMONARY EMBOLISM [None]
